FAERS Safety Report 7799398-6 (Version None)
Quarter: 2011Q4

REPORT INFORMATION
  Report Type: 
  Country: None (occurrence: None)
  Receive Date: 20111006
  Receipt Date: 20110928
  Transmission Date: 20120403
  Serious: Yes (Disabling, Other)
  Sender: FDA-Public Use
  Company Number: US-US-EMD SERONO, INC.-7086643

PATIENT
  Sex: Male

DRUGS (1)
  1. REBIF [Suspect]
     Indication: MULTIPLE SCLEROSIS
     Route: 058
     Dates: start: 20030327

REACTIONS (4)
  - MUSCULOSKELETAL STIFFNESS [None]
  - DEPRESSION [None]
  - THROMBOSIS [None]
  - DISEASE PROGRESSION [None]
